FAERS Safety Report 23177341 (Version 1)
Quarter: 2023Q4

REPORT INFORMATION
  Report Type: Spontaneous
  Country: US (occurrence: None)
  Receive Date: 20231111
  Receipt Date: 20231111
  Transmission Date: 20240110
  Serious: Yes (Hospitalization)
  Sender: FDA-Public Use
  Company Number: None

PATIENT
  Age: 34 Year
  Sex: Male
  Weight: 95.1 kg

DRUGS (1)
  1. FLUOROURACIL [Suspect]
     Active Substance: FLUOROURACIL
     Dates: end: 20230530

REACTIONS (4)
  - Abdominal pain [None]
  - Back pain [None]
  - Pyrexia [None]
  - Pulmonary embolism [None]

NARRATIVE: CASE EVENT DATE: 20230601
